FAERS Safety Report 9103007 (Version 1)
Quarter: 2013Q1

REPORT INFORMATION
  Report Type: Spontaneous
  Country: US (occurrence: US)
  Receive Date: 20130219
  Receipt Date: 20130219
  Transmission Date: 20140127
  Serious: Yes (Other)
  Sender: FDA-Public Use
  Company Number: US-GILEAD-2013-0069833

PATIENT
  Sex: Female

DRUGS (2)
  1. LETAIRIS [Suspect]
     Indication: PRODUCT USED FOR UNKNOWN INDICATION
     Dosage: 5 MG, QD
     Route: 048
     Dates: start: 20120514, end: 20130203
  2. IRON [Concomitant]

REACTIONS (5)
  - Transfusion [Unknown]
  - Weight increased [Unknown]
  - Calcium deficiency [Unknown]
  - Unevaluable event [Unknown]
  - Fatigue [Unknown]
